FAERS Safety Report 6846563-8 (Version None)
Quarter: 2010Q3

REPORT INFORMATION
  Report Type: 
  Country: None (occurrence: None)
  Receive Date: 20100715
  Receipt Date: 20070916
  Transmission Date: 20110219
  Serious: No
  Sender: FDA-Public Use
  Company Number: US-PFIZER INC-2007078590

PATIENT
  Sex: Male
  Weight: 104.54 kg

DRUGS (4)
  1. CHANTIX [Suspect]
     Indication: SMOKING CESSATION THERAPY
     Dates: start: 20070907
  2. LIPITOR [Concomitant]
  3. SYNTHROID [Concomitant]
  4. ACETYLSALICYLIC ACID [Concomitant]

REACTIONS (2)
  - DYSURIA [None]
  - NASOPHARYNGITIS [None]
